FAERS Safety Report 6471987-0 (Version None)
Quarter: 2009Q4

REPORT INFORMATION
  Report Type: 
  Country: None (occurrence: None)
  Receive Date: 20091203
  Receipt Date: 20080526
  Transmission Date: 20100525
  Serious: Yes (Death, Other)
  Sender: FDA-Public Use
  Company Number: FR-ELI_LILLY_AND_COMPANY-FR200804002145

PATIENT
  Age: 59 Year
  Sex: Female
  Weight: 65 kg

DRUGS (5)
  1. CYMBALTA [Suspect]
     Indication: DEPRESSION
     Dosage: 60 MG, DAILY (1/D)
     Route: 048
     Dates: start: 20080223
  2. XANAX [Concomitant]
     Indication: DEPRESSION
     Dosage: 0.25 MG, 3/D
     Route: 048
     Dates: start: 20080219
  3. DOGMATIL [Concomitant]
     Indication: DEPRESSION
     Dosage: 50 MG, 2/D
     Route: 048
     Dates: start: 20080311
  4. VITAMIN B-12 [Concomitant]
     Indication: PERNICIOUS ANAEMIA
     Dosage: UNK, UNKNOWN
     Route: 065
  5. METFORMIN HCL [Concomitant]
     Indication: DIABETES MELLITUS
     Dosage: UNK, UNKNOWN
     Route: 065

REACTIONS (5)
  - DEATH [None]
  - DRUG INTERACTION [None]
  - HEADACHE [None]
  - TACHYCARDIA [None]
  - VERTIGO [None]
